FAERS Safety Report 16125256 (Version 3)
Quarter: 2020Q4

REPORT INFORMATION
  Report Type: Report from Study
  Country: US (occurrence: US)
  Receive Date: 20190327
  Receipt Date: 20201228
  Transmission Date: 20210113
  Serious: Yes (Hospitalization)
  Sender: FDA-Public Use
  Company Number: PHEH2019US012962

PATIENT
  Sex: Male

DRUGS (3)
  1. ENTRESTO [Suspect]
     Active Substance: SACUBITRIL\VALSARTAN
     Dosage: 0.5 DF (SACUBITRIL 24MG/ VALSARTAN 26MG), BID
     Route: 048
  2. ENTRESTO [Suspect]
     Active Substance: SACUBITRIL\VALSARTAN
     Dosage: UNK, BID
     Route: 048
     Dates: start: 20201120
  3. ENTRESTO [Suspect]
     Active Substance: SACUBITRIL\VALSARTAN
     Indication: PRODUCT USED FOR UNKNOWN INDICATION
     Dosage: 50 MG, BID (SACUBITRIL 24MG/ VALSARTAN 26MG)
     Route: 048

REACTIONS (9)
  - Rhinorrhoea [Unknown]
  - Cough [Unknown]
  - Wrong technique in product usage process [Unknown]
  - Hypotension [Unknown]
  - Throat clearing [Unknown]
  - Underdose [Unknown]
  - Confusional state [Unknown]
  - Stress [Unknown]
  - Product dose omission issue [Unknown]
